FAERS Safety Report 7810762-9 (Version None)
Quarter: 2011Q4

REPORT INFORMATION
  Report Type: 
  Country: None (occurrence: None)
  Receive Date: 20111011
  Receipt Date: 20110926
  Transmission Date: 20120403
  Serious: Yes (Hospitalization)
  Sender: FDA-Public Use
  Company Number: TCI2011A05163

PATIENT
  Sex: Male

DRUGS (3)
  1. CONIEL (BENIDIPINE HYDROCHLORIDE) [Concomitant]
  2. GLYBURIDE [Concomitant]
  3. ACTOS [Suspect]
     Indication: TYPE 2 DIABETES MELLITUS
     Dosage: 15 MG (15 MG,1 D) PER ORAL
     Route: 048
     Dates: start: 20041229, end: 20110910

REACTIONS (1)
  - BLADDER CANCER [None]
